FAERS Safety Report 8187324-X (Version None)
Quarter: 2012Q1

REPORT INFORMATION
  Report Type: 
  Country: None (occurrence: None)
  Receive Date: 20120306
  Receipt Date: 20120227
  Transmission Date: 20120608
  Serious: Yes (Other)
  Sender: FDA-Public Use
  Company Number: US-PFIZER INC-2012052766

PATIENT

DRUGS (8)
  1. CELEBREX [Suspect]
     Dosage: 200 MG, 2X/DAY
     Route: 048
  2. PAXIL [Concomitant]
     Dosage: 40 MG, UNK
  3. ACETYLSALICYLIC ACID [Concomitant]
     Dosage: 75 MG, UNK
  4. IBUPROFEN (ADVIL) [Concomitant]
     Dosage: 800 MG, UNK
  5. TEKAMLO [Concomitant]
     Dosage: 150.5 MG, UNK
  6. VITAMIN D [Concomitant]
     Dosage: 2000 UNIT
  7. MOTRIN [Concomitant]
     Dosage: 800 MG, UNK
  8. MULTIPLE VITAMIN [Concomitant]
     Dosage: UNK

REACTIONS (5)
  - ARTHRALGIA [None]
  - ESSENTIAL HYPERTENSION [None]
  - DEPRESSION [None]
  - BACK PAIN [None]
  - ANXIETY DISORDER [None]
